FAERS Safety Report 8790553 (Version 1)
Quarter: 2012Q4

REPORT INFORMATION
  Report Type: Spontaneous
  Country: US (occurrence: None)
  Receive Date: 20120912
  Receipt Date: 20120912
  Transmission Date: 20130627
  Serious: Yes (Hospitalization)
  Sender: FDA-Public Use
  Company Number: None

PATIENT
  Age: 1 Month
  Sex: Female
  Weight: 3 kg

DRUGS (1)
  1. RITUXAN [Suspect]
     Indication: NON-HODGKIN^S LYMPHOMA
     Dates: start: 201111, end: 201205

REACTIONS (8)
  - Anal abscess [None]
  - Maternal drugs affecting foetus [None]
  - Fever neonatal [None]
  - Irritability [None]
  - Haematochezia [None]
  - Vomiting [None]
  - Neutropenia [None]
  - B-lymphocyte count decreased [None]
